FAERS Safety Report 7037610-1 (Version None)
Quarter: 2010Q4

REPORT INFORMATION
  Report Type: 
  Country: None (occurrence: None)
  Receive Date: 20101011
  Receipt Date: 20100928
  Transmission Date: 20110411
  Serious: Yes (Other)
  Sender: FDA-Public Use
  Company Number: PHHY2010JP59551

PATIENT
  Age: 37 Week
  Sex: Male
  Weight: 2.134 kg

DRUGS (4)
  1. SANDIMMUNE [Suspect]
     Indication: SYSTEMIC INFLAMMATORY RESPONSE SYNDROME
     Dosage: 2.1 MG/KG
     Dates: start: 20070709, end: 20071110
  2. STEROIDS NOS [Concomitant]
     Indication: CHOLESTASIS
  3. METHYLPREDNISOLONE [Concomitant]
     Dosage: 30 MG/KG
     Route: 042
     Dates: start: 20070629, end: 20070711
  4. PREDNISOLONE [Concomitant]
     Dosage: UNK
     Route: 048
     Dates: start: 20070712

REACTIONS (3)
  - ASTHMA [None]
  - EPILEPSY [None]
  - INTERLEUKIN LEVEL INCREASED [None]
